FAERS Safety Report 18414844 (Version 1)
Quarter: 2020Q4

REPORT INFORMATION
  Report Type: Spontaneous
  Country: US (occurrence: US)
  Receive Date: 20201020
  Receipt Date: 20201020
  Transmission Date: 20210114
  Serious: Yes (Other)
  Sender: FDA-Public Use
  Company Number: None

PATIENT
  Age: 45 Year
  Sex: Female
  Weight: 54.9 kg

DRUGS (2)
  1. DAILY VITAMIN [Concomitant]
     Active Substance: VITAMINS
  2. RELIZEN HTTPS://HELLOBONAFIDE.COM/COLLECTIONS/MENOPAUSE [Suspect]
     Active Substance: DIETARY SUPPLEMENT
     Indication: NIGHT SWEATS
     Dosage: ?          QUANTITY:2 TABLET(S);?
     Route: 048
     Dates: start: 20201016, end: 20201016

REACTIONS (2)
  - Drug hypersensitivity [None]
  - Influenza like illness [None]

NARRATIVE: CASE EVENT DATE: 20201016
